FAERS Safety Report 10163107 (Version 9)
Quarter: 2014Q3

REPORT INFORMATION
  Report Type: Spontaneous
  Country: US (occurrence: US)
  Receive Date: 20140509
  Receipt Date: 20140818
  Transmission Date: 20150326
  Serious: Yes (Hospitalization, Other)
  Sender: FDA-Public Use
  Company Number: US-ACTELION-A-NJ2014-98703

PATIENT
  Age: 60 Year
  Sex: Female

DRUGS (4)
  1. VENTAVIS [Suspect]
     Active Substance: ILOPROST
     Indication: PULMONARY ARTERIAL HYPERTENSION
     Dosage: 5 MCG, 4-6XDAILY
     Route: 055
     Dates: start: 20081001
  2. TRACLEER [Suspect]
     Active Substance: BOSENTAN\BOSENTAN MONOHYDRATE
     Indication: PULMONARY ARTERIAL HYPERTENSION
     Dosage: UNK
     Route: 048
  3. COUMADIN [Concomitant]
     Active Substance: WARFARIN SODIUM
  4. REVATIO [Concomitant]
     Active Substance: SILDENAFIL CITRATE

REACTIONS (18)
  - Carbon dioxide increased [Unknown]
  - Drug dose omission [Unknown]
  - Cough [Unknown]
  - Decreased appetite [Unknown]
  - Wound [Unknown]
  - Somnolence [Unknown]
  - Asthenia [Unknown]
  - Pulpitis dental [Unknown]
  - Weight decreased [Unknown]
  - Wound infection [Unknown]
  - Nausea [Unknown]
  - Malaise [Unknown]
  - Chest discomfort [Unknown]
  - Fatigue [Unknown]
  - Dyspnoea [Unknown]
  - Respiratory disorder [Unknown]
  - Heart rate increased [Unknown]
  - Toothache [Unknown]

NARRATIVE: CASE EVENT DATE: 20140501
